FAERS Safety Report 5908211-0 (Version None)
Quarter: 2008Q4

REPORT INFORMATION
  Report Type: 
  Country: None (occurrence: None)
  Receive Date: 20081006
  Receipt Date: 20080926
  Transmission Date: 20090506
  Serious: Yes (Other)
  Sender: FDA-Public Use
  Company Number: GB-RANBAXY-2008RR-14899

PATIENT
  Age: 35 Year
  Sex: Female

DRUGS (1)
  1. RISPERIDONE [Suspect]
     Indication: BIPOLAR DISORDER

REACTIONS (6)
  - ABDOMINAL DISTENSION [None]
  - AMENORRHOEA [None]
  - DELUSIONAL PERCEPTION [None]
  - HYPERPROLACTINAEMIA [None]
  - SOMATOFORM DISORDER PREGNANCY [None]
  - THINKING ABNORMAL [None]
